FAERS Safety Report 13068775 (Version 1)
Quarter: 2016Q4

REPORT INFORMATION
  Report Type: Report from Study
  Country: JP (occurrence: JP)
  Receive Date: 20161228
  Receipt Date: 20161228
  Transmission Date: 20170207
  Serious: Yes (Other)
  Sender: FDA-Public Use
  Company Number: JP-ACTELION-A-CH2016-147522

PATIENT
  Age: 14 Year
  Sex: Male

DRUGS (15)
  1. OPSUMIT [Suspect]
     Active Substance: MACITENTAN
     Indication: PULMONARY ARTERIAL HYPERTENSION
     Dosage: 2.5 MG, OD
     Route: 048
     Dates: start: 20160325, end: 20160327
  2. ROZEREM [Concomitant]
     Active Substance: RAMELTEON
  3. CALFINA [Concomitant]
     Active Substance: ALFACALCIDOL
  4. SULFAMETHOXAZOLE AND TRIMETHOPRIM [Concomitant]
     Active Substance: SULFAMETHOXAZOLE\TRIMETHOPRIM
  5. XYZAL [Concomitant]
     Active Substance: LEVOCETIRIZINE DIHYDROCHLORIDE
  6. ADCIRCA [Concomitant]
     Active Substance: TADALAFIL
  7. ALDACTONE A [Concomitant]
     Active Substance: SPIRONOLACTONE
  8. THEO-DUR [Concomitant]
     Active Substance: THEOPHYLLINE ANHYDROUS
  9. DEPAKENE [Concomitant]
     Active Substance: VALPROIC ACID
  10. LORAZEPAM. [Concomitant]
     Active Substance: LORAZEPAM
  11. OXYGEN. [Concomitant]
     Active Substance: OXYGEN
  12. PRANLUKAST [Concomitant]
     Active Substance: PRANLUKAST
  13. OPSUMIT [Suspect]
     Active Substance: MACITENTAN
     Dosage: 3.2 MG, OD
     Route: 048
     Dates: start: 20160328
  14. WIDECILLIN [Concomitant]
     Active Substance: AMOXICILLIN
  15. BIOFERMIN R [Concomitant]
     Active Substance: BACILLUS SUBTILIS\LACTOBACILLUS ACIDOPHILUS\STREPTOCOCCUS FAECAIS

REACTIONS (1)
  - Pulmonary oedema [Recovering/Resolving]

NARRATIVE: CASE EVENT DATE: 20160327
